FAERS Safety Report 4725257-9 (Version None)
Quarter: 2005Q3

REPORT INFORMATION
  Report Type: 
  Country: None (occurrence: None)
  Receive Date: 20050725
  Receipt Date: 20050707
  Transmission Date: 20060218
  Serious: Yes (Death)
  Sender: FDA-Public Use
  Company Number: 142593USA

PATIENT
  Age: 38 Year
  Sex: Female

DRUGS (1)
  1. PROPOFOL [Suspect]
     Dates: start: 20000414, end: 20000414

REACTIONS (3)
  - COMA [None]
  - INFUSION RELATED REACTION [None]
  - RESPIRATORY ARREST [None]
